FAERS Safety Report 16406654 (Version 1)
Quarter: 2019Q2

REPORT INFORMATION
  Report Type: Spontaneous
  Country: US (occurrence: US)
  Receive Date: 20190607
  Receipt Date: 20190607
  Transmission Date: 20190711
  Serious: No
  Sender: FDA-Public Use
  Company Number: US-ARBOR PHARMACEUTICALS, LLC-US-2018ARB000603

PATIENT
  Sex: Female

DRUGS (1)
  1. NYMALIZE [Suspect]
     Active Substance: NIMODIPINE
     Indication: PRODUCT USED FOR UNKNOWN INDICATION
     Dosage: 30 MG, EVERY 2 HOURS

REACTIONS (3)
  - Inappropriate schedule of product administration [Unknown]
  - Product administration error [Unknown]
  - Vomiting [Unknown]
